FAERS Safety Report 7793397-6 (Version None)
Quarter: 2011Q4

REPORT INFORMATION
  Report Type: 
  Country: None (occurrence: None)
  Receive Date: 20111003
  Receipt Date: 20110615
  Transmission Date: 20120403
  Serious: No
  Sender: FDA-Public Use
  Company Number: US-BAYER-2011-052577

PATIENT
  Age: 86 Year
  Sex: Male

DRUGS (3)
  1. PREDNISONE [Concomitant]
  2. AVELOX [Suspect]
     Indication: PNEUMONIA
     Dosage: 400 MG, QD
     Route: 048
     Dates: start: 20110615
  3. BIAXIN [Concomitant]

REACTIONS (4)
  - MICTURITION FREQUENCY DECREASED [None]
  - DIZZINESS [None]
  - GAIT DISTURBANCE [None]
  - ANXIETY [None]
